FAERS Safety Report 8755799 (Version 2)
Quarter: 2012Q4

REPORT INFORMATION
  Report Type: 
  Country: US (occurrence: US)
  Receive Date: 20120827
  Receipt Date: 20120926
  Transmission Date: 20130627
  Serious: Yes (Other)
  Sender: FDA-Public Use
  Company Number: US-PFIZER INC-2012206283

PATIENT
  Age: 26 Year
  Sex: Male
  Weight: 53.97 kg

DRUGS (8)
  1. CALTRATE [Suspect]
     Indication: BONE DISORDER
     Dosage: UNK, daily
     Dates: start: 2000
  2. LYRICA [Suspect]
     Indication: HYPERTENSIVE CRISIS
     Dosage: 175 mg, daily
     Dates: start: 2006
  3. LYRICA [Suspect]
     Dosage: UNK, Daily
  4. LYRICA [Suspect]
     Dosage: 25 mg, Daily
  5. CATAPRES [Concomitant]
     Indication: HYPERTENSION
     Dosage: 0.1 mg, 2x/day
     Dates: start: 1991
  6. FLORINEF [Concomitant]
     Indication: HYPERTENSION
     Dosage: 0.1 mg, daily
     Dates: start: 1991
  7. CARBIDOPA [Concomitant]
     Indication: HEREDITARY DISORDER
     Dosage: 250 mg, 3x/day
     Dates: start: 2010
  8. MIRALAX [Concomitant]
     Indication: CONSTIPATION
     Dosage: UNK

REACTIONS (1)
  - Pancreatitis [Unknown]
